FAERS Safety Report 9746615 (Version 2)
Quarter: 2013Q4

REPORT INFORMATION
  Report Type: Report from Study
  Country: CA (occurrence: CA)
  Receive Date: 20131211
  Receipt Date: 20131230
  Transmission Date: 20140711
  Serious: Yes (Hospitalization)
  Sender: FDA-Public Use
  Company Number: CA-ABBVIE-13P-028-1175883-00

PATIENT
  Sex: Male
  Weight: 68 kg

DRUGS (1)
  1. KALETRA 200/50 [Suspect]
     Indication: HIV INFECTION
     Dosage: 200/50 MG, 2 TABS
     Route: 048
     Dates: start: 20091101

REACTIONS (5)
  - Cystitis [Recovered/Resolved]
  - Diabetes mellitus [Unknown]
  - Hypertension [Unknown]
  - Mobility decreased [Unknown]
  - Disturbance in attention [Unknown]
